FAERS Safety Report 5511143-3 (Version None)
Quarter: 2007Q4

REPORT INFORMATION
  Report Type: 
  Country: None (occurrence: None)
  Receive Date: 20071109
  Receipt Date: 20071029
  Transmission Date: 20080405
  Serious: Yes (Other)
  Sender: FDA-Public Use
  Company Number: PL-WYE-H00963107

PATIENT
  Sex: Female
  Weight: 63 kg

DRUGS (9)
  1. EFFEXOR XR [Suspect]
     Indication: HERPES ZOSTER
     Route: 048
     Dates: start: 20070620, end: 20070623
  2. ALENDRONATE SODIUM [Concomitant]
     Dosage: UNKNOWN
  3. ZOCOR [Concomitant]
     Indication: HYPERTENSION
     Dosage: 20 MG (FREQUENCY UNSPECIFIED)
  4. ZOCOR [Concomitant]
     Indication: MYOCARDIAL ISCHAEMIA
  5. ASPIRIN [Concomitant]
     Indication: HYPERTENSION
     Dosage: ^0,075 G^ (FREQUENCY UNSPECIFIED)
  6. ASPIRIN [Concomitant]
     Indication: MYOCARDIAL ISCHAEMIA
  7. PARACETAMOL [Concomitant]
     Indication: HERPES ZOSTER
     Dosage: 1500 MG (FREQUENCY UNSPECIFIED)
     Dates: start: 20070509
  8. BETALOC [Concomitant]
     Indication: HYPERTENSION
     Dosage: UNKNOWN
  9. BETALOC [Concomitant]
     Indication: MYOCARDIAL ISCHAEMIA

REACTIONS (2)
  - BURNING SENSATION [None]
  - ERYTHEMA [None]
